FAERS Safety Report 9966747 (Version 1)
Quarter: 2014Q1

REPORT INFORMATION
  Report Type: Report from Study
  Country: PR (occurrence: PR)
  Receive Date: 20140305
  Receipt Date: 20140305
  Transmission Date: 20141002
  Serious: No
  Sender: FDA-Public Use
  Company Number: PR-ABBVIE-13P-131-1120147-00

PATIENT
  Sex: Female

DRUGS (7)
  1. HUMIRA [Suspect]
     Indication: RHEUMATOID ARTHRITIS
     Route: 058
     Dates: start: 201112, end: 20130127
  2. HUMIRA [Suspect]
     Route: 058
  3. ZOLPIDEM [Concomitant]
     Indication: SLEEP DISORDER THERAPY
     Dosage: AT BEDTIME
     Route: 048
  4. CALCIUM [Concomitant]
     Indication: OSTEOARTHRITIS
     Route: 048
  5. LOSARTAN [Concomitant]
     Indication: HYPERTENSION
     Route: 048
     Dates: start: 201301
  6. METHOTREXATE [Concomitant]
     Indication: RHEUMATOID ARTHRITIS
     Dosage: ON TUESDAYS
     Route: 048
     Dates: start: 2009
  7. BONIVA [Concomitant]
     Indication: OSTEOARTHRITIS
     Route: 048
     Dates: start: 201212

REACTIONS (1)
  - Malaise [Unknown]
